FAERS Safety Report 9307496 (Version 1)
Quarter: 2013Q2

REPORT INFORMATION
  Report Type: Spontaneous
  Country: AU (occurrence: AU)
  Receive Date: 20130524
  Receipt Date: 20130524
  Transmission Date: 20140414
  Serious: Yes (Other)
  Sender: FDA-Public Use
  Company Number: AU-AMGEN-AUSSP2013035662

PATIENT
  Age: 84 Year
  Sex: Male

DRUGS (3)
  1. XGEVA [Suspect]
     Indication: PRODUCT USED FOR UNKNOWN INDICATION
     Dosage: 120 MG, UNK
     Route: 058
     Dates: start: 20120314, end: 20121003
  2. COSUDEX [Concomitant]
  3. GOSERELIN ACETATE [Concomitant]

REACTIONS (1)
  - Hypocalcaemia [Not Recovered/Not Resolved]
